FAERS Safety Report 16943925 (Version 4)
Quarter: 2020Q2

REPORT INFORMATION
  Report Type: Spontaneous
  Country: ES (occurrence: ES)
  Receive Date: 20191022
  Receipt Date: 20200527
  Transmission Date: 20200713
  Serious: Yes (Hospitalization)
  Sender: FDA-Public Use
  Company Number: ES-TEVA-2019-ES-1124136

PATIENT
  Age: 70 Year
  Sex: Male

DRUGS (3)
  1. NOXAFIL [Interacting]
     Active Substance: POSACONAZOLE
     Indication: ANTIFUNGAL PROPHYLAXIS
     Dosage: 100 MG EVERY 8 HOURS
     Route: 048
     Dates: start: 20190108, end: 20190131
  2. LEVOFLOXACINO (2791A) [Suspect]
     Active Substance: LEVOFLOXACIN
     Indication: FEBRILE NEUTROPENIA
     Dosage: 500 MG
     Route: 048
     Dates: start: 20190125
  3. DIGOXINA TEOFARMA 0,25 MG COMPRIMIDOS, 50 COMPRIMIDOS [Interacting]
     Active Substance: DIGOXIN
     Indication: ATRIAL FIBRILLATION
     Dosage: 0,25MG C/24H
     Route: 048
     Dates: start: 20181025, end: 20190131

REACTIONS (3)
  - Drug interaction [Recovered/Resolved]
  - Atrioventricular block [Recovered/Resolved]
  - Cardioactive drug level increased [Recovered/Resolved]

NARRATIVE: CASE EVENT DATE: 20190131
